FAERS Safety Report 10253287 (Version 6)
Quarter: 2015Q1

REPORT INFORMATION
  Report Type: Report from Study
  Country: AU (occurrence: AU)
  Receive Date: 20140623
  Receipt Date: 20150327
  Transmission Date: 20150720
  Serious: Yes (Hospitalization, Other)
  Sender: FDA-Public Use
  Company Number: AU-VERTEX PHARMACEUTICALS (CANADA)-2014-002710

PATIENT
  Age: 15 Year
  Sex: Female

DRUGS (19)
  1. VX-770 FDC [Suspect]
     Active Substance: IVACAFTOR
     Indication: CYSTIC FIBROSIS
     Dosage: 250 MG, QAM
     Route: 048
     Dates: start: 20130815, end: 20140202
  2. SALBUTAMOL [Concomitant]
     Active Substance: ALBUTEROL
     Indication: CYSTIC FIBROSIS LUNG
     Dosage: 4-6 PUFFS BID
     Route: 055
     Dates: start: 20130410
  3. ABDECK VITAMIN [Concomitant]
     Indication: HYPOVITAMINOSIS
     Dosage: 2 TABS, QD
     Route: 048
     Dates: start: 200810
  4. VX-809 FDC [Suspect]
     Active Substance: IVACAFTOR
     Indication: CYSTIC FIBROSIS
     Dosage: 600 MG, QAM
     Route: 048
     Dates: start: 20140203, end: 20140623
  5. VX-770 [Suspect]
     Active Substance: IVACAFTOR
     Dosage: 250 MG, QPM
     Route: 048
     Dates: start: 20141228
  6. VX-770 [Suspect]
     Active Substance: IVACAFTOR
     Indication: CYSTIC FIBROSIS
     Dosage: 250 MG, QPM
     Route: 048
     Dates: start: 20130815, end: 20140202
  7. VX-809 FDC [Suspect]
     Active Substance: IVACAFTOR
     Indication: CYSTIC FIBROSIS
     Dosage: 600 MG, QAM
     Route: 048
     Dates: start: 20130815, end: 20140202
  8. HYPERTONIC SALINE SOLUTION [Concomitant]
     Active Substance: SODIUM CHLORIDE
     Indication: CYSTIC FIBROSIS LUNG
     Dosage: 5 ML, BID
     Route: 055
     Dates: start: 20130410
  9. AUGMENTIN [Concomitant]
     Active Substance: AMOXICILLIN\CLAVULANATE POTASSIUM
  10. VX-809 FDC [Suspect]
     Active Substance: IVACAFTOR
     Dosage: 600 MG, QAM
     Route: 048
     Dates: start: 20141228
  11. VX-770 FDC [Suspect]
     Active Substance: IVACAFTOR
     Indication: CYSTIC FIBROSIS
     Dosage: 250 MG, QAM
     Route: 048
     Dates: start: 20140203, end: 20140623
  12. VX-770 [Suspect]
     Active Substance: IVACAFTOR
     Indication: CYSTIC FIBROSIS
     Dosage: 250 MG, QPM
     Route: 048
     Dates: start: 20140203, end: 20140623
  13. PULMOZYME [Concomitant]
     Active Substance: DORNASE ALFA
     Indication: CYSTIC FIBROSIS LUNG
     Dosage: 2.5 MG, QD
     Route: 055
     Dates: start: 200911
  14. SALT [Concomitant]
     Active Substance: SODIUM CHLORIDE
     Indication: HYPONATRAEMIA
     Dosage: 2 UNK, QD
     Route: 048
     Dates: start: 20140331
  15. VITAMIN B12 [Concomitant]
     Active Substance: CYANOCOBALAMIN
     Indication: VITAMIN B12 DEFICIENCY
     Dosage: 1 DF, QD
     Route: 048
     Dates: start: 20140116
  16. CREON [Concomitant]
     Active Substance: PANCRELIPASE AMYLASE\PANCRELIPASE LIPASE\PANCRELIPASE PROTEASE
     Indication: PANCREATIC INSUFFICIENCY
     Dosage: 1 CAPSULE, QD
     Route: 048
     Dates: start: 1998
  17. VX-770 FDC [Suspect]
     Active Substance: IVACAFTOR
     Dosage: 250 MG, QAM
     Route: 048
     Dates: start: 20141228
  18. GLUCOLYTE [Concomitant]
     Indication: DEHYDRATION
     Dosage: 3 SACHETS QD
     Route: 048
     Dates: start: 20140224
  19. BACTRIM [Concomitant]
     Active Substance: SULFAMETHOXAZOLE\TRIMETHOPRIM

REACTIONS (3)
  - Liver function test abnormal [Recovered/Resolved]
  - Infective pulmonary exacerbation of cystic fibrosis [Recovered/Resolved]
  - Bronchiectasis [Not Recovered/Not Resolved]

NARRATIVE: CASE EVENT DATE: 20140612
